FAERS Safety Report 21564017 (Version 2)
Quarter: 2023Q1

REPORT INFORMATION
  Report Type: Spontaneous
  Country: US (occurrence: None)
  Receive Date: 20221108
  Receipt Date: 20230110
  Transmission Date: 20230418
  Serious: Yes (Hospitalization)
  Sender: FDA-Public Use
  Company Number: US-ROCHE-3213164

PATIENT
  Sex: Male

DRUGS (2)
  1. NUTROPIN [Suspect]
     Active Substance: SOMATROPIN
     Indication: Product used for unknown indication
     Route: 058
  2. NUTROPIN [Suspect]
     Active Substance: SOMATROPIN

REACTIONS (4)
  - Influenza [Unknown]
  - Haematemesis [Unknown]
  - Gastritis [Unknown]
  - Oesophagitis [Unknown]
